FAERS Safety Report 13081317 (Version 1)
Quarter: 2017Q1

REPORT INFORMATION
  Report Type: Report from Study
  Country: BR (occurrence: BR)
  Receive Date: 20170103
  Receipt Date: 20170103
  Transmission Date: 20170428
  Serious: Yes (Hospitalization)
  Sender: FDA-Public Use
  Company Number: BR-ALEXION-A201610528

PATIENT
  Sex: Female
  Weight: 68 kg

DRUGS (2)
  1. CIPROFLOXACIN                      /00697203/ [Concomitant]
     Indication: PROPHYLAXIS
     Dosage: 500 MG, UNK
     Route: 048
     Dates: start: 20160213
  2. SOLIRIS [Suspect]
     Active Substance: ECULIZUMAB
     Indication: HAEMOLYTIC URAEMIC SYNDROME
     Dosage: 3 VIALS, QW
     Route: 042
     Dates: start: 20161216

REACTIONS (1)
  - Investigation [Not Recovered/Not Resolved]
